FAERS Safety Report 6735920-6 (Version None)
Quarter: 2010Q2

REPORT INFORMATION
  Report Type: 
  Country: None (occurrence: None)
  Receive Date: 20100521
  Receipt Date: 20100511
  Transmission Date: 20101027
  Serious: Yes (Hospitalization)
  Sender: FDA-Public Use
  Company Number: B0613126A

PATIENT
  Age: 84 Year
  Sex: Female

DRUGS (9)
  1. DEROXAT [Suspect]
     Indication: DRUG USE FOR UNKNOWN INDICATION
     Dosage: .5UNIT PER DAY
     Route: 048
  2. SINTROM [Suspect]
     Indication: DRUG USE FOR UNKNOWN INDICATION
     Route: 048
  3. LASILIX FAIBLE [Concomitant]
     Route: 065
  4. VASTAREL [Concomitant]
     Route: 065
  5. LYSANXIA [Concomitant]
     Route: 065
  6. ZOLPIDEM [Concomitant]
     Route: 065
  7. NEXIUM [Concomitant]
     Route: 065
  8. CORDARONE [Concomitant]
     Route: 065
  9. DIFFU K [Concomitant]
     Route: 065

REACTIONS (8)
  - ANAEMIA [None]
  - DRUG INTERACTION [None]
  - DYSPNOEA [None]
  - EPISTAXIS [None]
  - HAEMATOCHEZIA [None]
  - INTERNATIONAL NORMALISED RATIO INCREASED [None]
  - OVERDOSE [None]
  - OXYGEN SATURATION DECREASED [None]
